FAERS Safety Report 16656596 (Version 1)
Quarter: 2019Q3

REPORT INFORMATION
  Report Type: Spontaneous
  Country: US (occurrence: US)
  Receive Date: 20190801
  Receipt Date: 20190801
  Transmission Date: 20191004
  Serious: No
  Sender: FDA-Public Use
  Company Number: US-TEVA-2019-US-1084549

PATIENT
  Sex: Female

DRUGS (1)
  1. BUPROPION EXTENDED RELEASE [Suspect]
     Active Substance: BUPROPION
     Indication: DEPRESSION
     Dosage: DOSE STRENGTH: 150
     Dates: start: 20190717

REACTIONS (1)
  - Product residue present [Unknown]

NARRATIVE: CASE EVENT DATE: 20190724
